FAERS Safety Report 8262073-8 (Version None)
Quarter: 2012Q2

REPORT INFORMATION
  Report Type: 
  Country: None (occurrence: None)
  Receive Date: 20120405
  Receipt Date: 20120331
  Transmission Date: 20120825
  Serious: Yes (Hospitalization, Other)
  Sender: FDA-Public Use
  Company Number: PHHY2012DE027970

PATIENT
  Sex: Male
  Weight: 101 kg

DRUGS (14)
  1. AMLODIPINE [Concomitant]
     Indication: HYPERTENSION
     Dosage: 5 MG, PER DAY
     Route: 048
     Dates: start: 20120225
  2. SPIRONOLACTONE [Concomitant]
     Indication: OEDEMA
     Dosage: 24 MG, PER DAY
     Route: 048
     Dates: start: 20120312
  3. TORSEMIDE [Concomitant]
     Indication: OEDEMA
     Dosage: 10 MG, PER DAY
     Route: 048
     Dates: start: 20120206
  4. RASILEZ HCT [Suspect]
     Indication: HYPERTENSION
     Dosage: 300/12.5 MG PER DAY
     Route: 048
     Dates: start: 20090713
  5. PANTOPRAZOLE [Concomitant]
     Indication: GASTROOESOPHAGEAL REFLUX DISEASE
     Dosage: 60 MG, PER DAY
     Route: 048
     Dates: start: 20030818
  6. ALPHA RECEPTOR BLOCKERS [Concomitant]
     Dosage: UNK
     Dates: end: 20090529
  7. ACE INHIBITORS [Concomitant]
     Dates: end: 20100330
  8. ANTIHYPERTENSIVES [Concomitant]
  9. DOMPERIDONE [Concomitant]
     Indication: NAUSEA
     Dosage: 20 MG, PER DAY
     Route: 048
     Dates: start: 20110916
  10. RASILEZ [Suspect]
     Indication: HYPERTENSION
     Route: 048
  11. TORSEMIDE [Concomitant]
     Indication: HYPERTENSION
  12. FLUVOXAMINE MALEATE [Concomitant]
     Indication: DEPRESSION
     Dosage: 100 MG, PER DAY
     Route: 048
     Dates: start: 20100601
  13. BISOPROLOL FUMARATE [Concomitant]
     Indication: HYPERTENSION
     Dosage: 10 MG, PER DAY
     Route: 048
     Dates: start: 20080124
  14. MIRTAZAPINE [Concomitant]
     Indication: DEPRESSION
     Dosage: 15 MG, PER DAY
     Route: 048
     Dates: start: 20101213

REACTIONS (8)
  - CORONARY ARTERY DISEASE [None]
  - NAUSEA [None]
  - OBESITY [None]
  - DYSPNOEA [None]
  - CARDIAC FAILURE [None]
  - DEPRESSION [None]
  - OEDEMA [None]
  - DIABETES MELLITUS [None]
